FAERS Safety Report 10176897 (Version 1)
Quarter: 2014Q2

REPORT INFORMATION
  Report Type: Spontaneous
  Country: FR (occurrence: FR)
  Receive Date: 20140516
  Receipt Date: 20140516
  Transmission Date: 20141212
  Serious: Yes (Other)
  Sender: FDA-Public Use
  Company Number: FR-PFIZER INC-2014133288

PATIENT
  Age: 37 Year
  Sex: Female

DRUGS (2)
  1. TRINORDIOL [Suspect]
     Indication: CONTRACEPTION
     Dosage: 1 DF, DAILY
     Route: 048
  2. HUMIRA [Interacting]
     Indication: CROHN^S DISEASE
     Dosage: 40 MG, WEEKLY
     Route: 058

REACTIONS (3)
  - Drug interaction [Unknown]
  - Drug ineffective [Unknown]
  - Unintended pregnancy [Unknown]
